FAERS Safety Report 7198276-3 (Version None)
Quarter: 2010Q4

REPORT INFORMATION
  Report Type: 
  Country: None (occurrence: None)
  Receive Date: 20101223
  Receipt Date: 20101223
  Transmission Date: 20110411
  Serious: Yes (Disabling)
  Sender: FDA-Public Use
  Company Number: None

PATIENT
  Sex: Female
  Weight: 77.1115 kg

DRUGS (2)
  1. METHOTREXATE [Suspect]
     Indication: WEGENER'S GRANULOMATOSIS
     Dosage: 1 ML 1 INJECTION PER WE SQ
     Route: 058
     Dates: start: 20100427, end: 20100804
  2. METHOTREXATE [Suspect]

REACTIONS (5)
  - DRUG INTOLERANCE [None]
  - INJECTION SITE ERYTHEMA [None]
  - INJECTION SITE PAIN [None]
  - INJECTION SITE SWELLING [None]
  - PRODUCT QUALITY ISSUE [None]
